FAERS Safety Report 9562778 (Version 2)
Quarter: 2013Q4

REPORT INFORMATION
  Report Type: Report from Study
  Country: CZ (occurrence: CZ)
  Receive Date: 20130927
  Receipt Date: 20131016
  Transmission Date: 20140711
  Serious: Yes (Death, Life-Threatening, Hospitalization, Other)
  Sender: FDA-Public Use
  Company Number: CZ-ABBVIE-13P-217-1151200-00

PATIENT
  Age: 66 Year
  Sex: Female

DRUGS (1)
  1. HUMIRA [Suspect]
     Indication: PRODUCT USED FOR UNKNOWN INDICATION
     Route: 058
     Dates: end: 20130628

REACTIONS (5)
  - Femoral neck fracture [Fatal]
  - Pulmonary embolism [Fatal]
  - Multi-organ failure [Fatal]
  - Fall [Unknown]
  - Coma [Unknown]
